FAERS Safety Report 8181485-4 (Version None)
Quarter: 2012Q1

REPORT INFORMATION
  Report Type: 
  Country: None (occurrence: None)
  Receive Date: 20120302
  Receipt Date: 20120221
  Transmission Date: 20120608
  Serious: Yes (Hospitalization)
  Sender: FDA-Public Use
  Company Number: SE-TEVA-2011005145

PATIENT
  Sex: Male
  Weight: 87 kg

DRUGS (13)
  1. ZOPIKLON [Concomitant]
     Dates: start: 20110101
  2. SPIRONOLACTONE [Concomitant]
     Dates: start: 20000831
  3. FUROSEMIDE [Concomitant]
     Dates: start: 20000831
  4. BISOPROLOL FUMARATE [Concomitant]
     Dates: start: 20000831
  5. TREANDA [Suspect]
     Route: 042
     Dates: start: 20110909
  6. WARFARIN SODIUM [Concomitant]
     Dates: start: 20000626
  7. CITALOPRAM HYDROBROMIDE [Concomitant]
     Dates: start: 20041228
  8. CANDESARTAN CILEXETIL [Concomitant]
     Dates: start: 20000831
  9. FINASTERIDE [Concomitant]
     Dates: start: 20040101
  10. RITUXIMAB [Suspect]
     Route: 042
     Dates: start: 20110909
  11. ACETYLSALICYLSYRA [Concomitant]
  12. ACTAVIX [Concomitant]
  13. TOVIAZ [Concomitant]
     Dates: start: 20091104

REACTIONS (2)
  - ANGINA PECTORIS [None]
  - FEBRILE NEUTROPENIA [None]
